FAERS Safety Report 16780643 (Version 1)
Quarter: 2019Q3

REPORT INFORMATION
  Report Type: Spontaneous
  Country: US (occurrence: US)
  Receive Date: 20190717
  Receipt Date: 20190717
  Transmission Date: 20191005
  Serious: Yes (Hospitalization)
  Sender: FDA-Public Use
  Company Number: None

PATIENT
  Age: 41 Year
  Sex: Male
  Weight: 72.1 kg

DRUGS (16)
  1. ATOVAQUONE. [Concomitant]
     Active Substance: ATOVAQUONE
  2. BUPROPION. [Concomitant]
     Active Substance: BUPROPION
  3. MOXIFLOXACIN. [Concomitant]
     Active Substance: MOXIFLOXACIN
  4. TRIAMCINOLONE [Concomitant]
     Active Substance: TRIAMCINOLONE
  5. VALACYCLOVIR [Concomitant]
     Active Substance: VALACYCLOVIR HYDROCHLORIDE
  6. ONDANSATRON [Concomitant]
  7. POTASSIUM CHLORIDE. [Concomitant]
     Active Substance: POTASSIUM CHLORIDE
  8. HYDROCORTISONE. [Concomitant]
     Active Substance: HYDROCORTISONE
  9. COMPAZINE [Concomitant]
     Active Substance: PROCHLORPERAZINE MALEATE
  10. OXYCODONE [Concomitant]
     Active Substance: OXYCODONE
  11. CIDOFOVIR. [Concomitant]
     Active Substance: CIDOFOVIR
  12. IDELALISIB 100MG BID [Suspect]
     Active Substance: IDELALISIB
     Indication: COMPLICATIONS OF BONE MARROW TRANSPLANT
     Route: 048
     Dates: start: 20190514, end: 20190522
  13. PROBENECID. [Concomitant]
     Active Substance: PROBENECID
  14. NYSTATIN. [Concomitant]
     Active Substance: NYSTATIN
  15. PANTOPRAZOLE [Concomitant]
     Active Substance: PANTOPRAZOLE
  16. DONNATAL [Concomitant]
     Active Substance: ATROPINE SULFATE\HYOSCYAMINE SULFATE\PHENOBARBITAL\SCOPOLAMINE HYDROBROMIDE

REACTIONS (2)
  - Cytopenia [None]
  - Graft versus host disease [None]

NARRATIVE: CASE EVENT DATE: 20190715
